FAERS Safety Report 6535846-7 (Version None)
Quarter: 2009Q4

REPORT INFORMATION
  Report Type: 
  Country: None (occurrence: None)
  Receive Date: 20091229
  Receipt Date: 20091005
  Transmission Date: 20100525
  Serious: Yes (Other)
  Sender: FDA-Public Use
  Company Number: WAES 0910USA00588

PATIENT
  Sex: Male

DRUGS (3)
  1. ZETIA [Suspect]
     Indication: BLOOD CHOLESTEROL
     Dosage: 10 MG/DAILY/PO
     Route: 048
  2. ALTACE [Concomitant]
  3. AMARYL [Concomitant]

REACTIONS (1)
  - RHABDOMYOLYSIS [None]
